FAERS Safety Report 11515055 (Version 1)
Quarter: 2015Q3

REPORT INFORMATION
  Report Type: Spontaneous
  Country: US (occurrence: US)
  Receive Date: 20150916
  Receipt Date: 20150916
  Transmission Date: 20151125
  Serious: Yes (Other)
  Sender: FDA-Public Use
  Company Number: US-BAXTER-2015BAX050331

PATIENT
  Age: 38 Year
  Sex: Female

DRUGS (9)
  1. DOPAMINE HYDROCHLORIDE AND DEXTROSE [Suspect]
     Active Substance: DOPAMINE HYDROCHLORIDE
     Indication: SHOCK
     Dosage: MULTIPLE DOSES
     Route: 065
  2. PROGESTERONE. [Suspect]
     Active Substance: PROGESTERONE
     Indication: TOCOLYSIS
     Route: 065
  3. NOREPINEPHRINE [Suspect]
     Active Substance: NOREPINEPHRINE\NOREPINEPHRINE BITARTRATE
     Indication: SHOCK
     Dosage: MULTIPLE DOSES
     Route: 065
  4. DOBUTAMINE HYDROCHLORIDE IN DEXTROSE [Suspect]
     Active Substance: DEXTROSE MONOHYDRATE\DEXTROSE MONOHYDRATE\DOBUTAMINE HYDROCHLORIDE\DOBUTAMINE HYDROCHLORIDE
     Indication: SHOCK
     Dosage: MULTIPLE DOSES
     Route: 065
  5. INDOMETHACIN. [Suspect]
     Active Substance: INDOMETHACIN
     Indication: UTERINE CONTRACTIONS DURING PREGNANCY
     Route: 065
  6. BETAMETHASONE. [Suspect]
     Active Substance: BETAMETHASONE
     Indication: IMMATURE RESPIRATORY SYSTEM
     Route: 065
  7. MAGNESIUM [Suspect]
     Active Substance: MAGNESIUM
     Indication: TOCOLYSIS
     Route: 041
  8. CEFAZOLIN INJECTION [Suspect]
     Active Substance: CEFAZOLIN
     Indication: PREMATURE RUPTURE OF MEMBRANES
     Route: 042
  9. VASOPRESSIN. [Suspect]
     Active Substance: VASOPRESSIN
     Indication: SHOCK
     Dosage: MULTIPLE DOSES
     Route: 065

REACTIONS (11)
  - General physical health deterioration [Recovered/Resolved]
  - Anaphylactoid syndrome of pregnancy [Recovered/Resolved]
  - Disseminated intravascular coagulation [Unknown]
  - Anaemia [Unknown]
  - Pulmonary embolism [Recovered/Resolved]
  - Multi-organ disorder [Recovered/Resolved]
  - Premature delivery [Recovered/Resolved]
  - Shock [Recovered/Resolved]
  - Exposure during pregnancy [Recovered/Resolved]
  - Abdominal compartment syndrome [Unknown]
  - Seizure like phenomena [Unknown]
